FAERS Safety Report 11857251 (Version 3)
Quarter: 2016Q1

REPORT INFORMATION
  Report Type: Spontaneous
  Country: US (occurrence: US)
  Receive Date: 20151221
  Receipt Date: 20160122
  Transmission Date: 20160526
  Serious: No
  Sender: FDA-Public Use
  Company Number: US-PFIZER INC-2015419669

PATIENT
  Age: 13 Year
  Sex: Female
  Weight: 45 kg

DRUGS (8)
  1. LORATADINE D [Concomitant]
     Active Substance: LORATADINE\PSEUDOEPHEDRINE SULFATE
     Indication: ACUTE SINUSITIS
     Dosage: 1 DF, 1X/DAY, (MORNING)
     Dates: start: 20151113
  2. AZITHROMYCIN ANHYDROUS. [Suspect]
     Active Substance: AZITHROMYCIN ANHYDROUS
     Indication: SINUSITIS
     Dosage: 875MG ONE TABLET EVERY 12 HOURS
     Route: 048
     Dates: start: 20151113, end: 201511
  3. PREDNISONE. [Concomitant]
     Active Substance: PREDNISONE
     Indication: ACUTE SINUSITIS
     Dosage: 3 DF, UNK, (ON DAY 1)
     Route: 048
     Dates: start: 20151113
  4. ZOFRAN [Concomitant]
     Active Substance: ONDANSETRON HYDROCHLORIDE
     Indication: NAUSEA
     Dosage: 1 DF, 3X/DAY, (PRN)
     Dates: start: 20151113
  5. ZOFRAN [Concomitant]
     Active Substance: ONDANSETRON HYDROCHLORIDE
     Indication: VOMITING
  6. PREDNISONE. [Concomitant]
     Active Substance: PREDNISONE
     Dosage: 3 DF, UNK, (ON DAYS 2-3)
     Route: 048
     Dates: start: 20151113
  7. PREDNISONE. [Concomitant]
     Active Substance: PREDNISONE
     Dosage: 3 DF, UNK, (ON DAYS 4-5)
     Route: 048
     Dates: start: 20151113
  8. AMOXICILLIN. [Suspect]
     Active Substance: AMOXICILLIN
     Indication: ACUTE SINUSITIS
     Dosage: 1 DF, EVERY 12 HOURS
     Route: 048
     Dates: start: 20151113

REACTIONS (6)
  - Diarrhoea [Recovered/Resolved]
  - Vomiting [Recovered/Resolved]
  - Off label use [Unknown]
  - Nausea [Recovered/Resolved]
  - Dyspnoea [Not Recovered/Not Resolved]
  - Drug ineffective [Unknown]

NARRATIVE: CASE EVENT DATE: 201511
